FAERS Safety Report 8020951-9 (Version None)
Quarter: 2011Q4

REPORT INFORMATION
  Report Type: 
  Country: None (occurrence: None)
  Receive Date: 20111229
  Receipt Date: 20111229
  Transmission Date: 20120403
  Serious: No
  Sender: FDA-Public Use
  Company Number: None

PATIENT
  Age: 59 Year
  Sex: Female
  Weight: 59.6 kg

DRUGS (2)
  1. CITALOPRAM [Suspect]
     Dosage: 60 MG EVERY DAY PO
     Route: 048
     Dates: start: 20100421, end: 20110831
  2. ONDANSETRON [Suspect]
     Dosage: 4 MG ONCE IV
     Route: 042
     Dates: start: 20110831, end: 20110831

REACTIONS (3)
  - TACHYCARDIA [None]
  - HYPOTENSION [None]
  - TORSADE DE POINTES [None]
